FAERS Safety Report 7214119-3 (Version None)
Quarter: 2011Q1

REPORT INFORMATION
  Report Type: 
  Country: None (occurrence: None)
  Receive Date: 20110107
  Receipt Date: 20101223
  Transmission Date: 20110831
  Serious: Yes (Other)
  Sender: FDA-Public Use
  Company Number: US-CELGENEUS-163-21880-07010160

PATIENT

DRUGS (1)
  1. REVLIMID [Suspect]
     Indication: EPENDYMOMA
     Route: 048
     Dates: start: 20060517

REACTIONS (5)
  - MYOSITIS [None]
  - NEUTROPHIL COUNT ABNORMAL [None]
  - INFECTION [None]
  - FEBRILE NEUTROPENIA [None]
  - WHITE BLOOD CELL DISORDER [None]
